FAERS Safety Report 19890251 (Version 4)
Quarter: 2021Q4

REPORT INFORMATION
  Report Type: Report from Study
  Country: CA (occurrence: CA)
  Receive Date: 20210928
  Receipt Date: 20211015
  Transmission Date: 20220303
  Serious: Yes (Hospitalization)
  Sender: FDA-Public Use
  Company Number: CA-ROCHE-2918012

PATIENT
  Age: 56 Year
  Sex: Female
  Weight: 85 kg

DRUGS (18)
  1. BELVARAFENIB [Suspect]
     Active Substance: BELVARAFENIB
     Indication: Malignant melanoma
     Dosage: ON 19/SEP/2021, SHE RECEIVED MOST RECENT DOSE AT 300 MG OF BELVARAFENIB PRIOR TO ONSET OF AE AND SAE
     Route: 048
     Dates: start: 20210908
  2. COBIMETINIB [Suspect]
     Active Substance: COBIMETINIB
     Indication: Malignant melanoma
     Dosage: ON 19/SEP/2021, SHE RECEIVED MOST RECENT DOSE AT 20 MG OF COBIMETINIB PRIOR TO ONSET OF AE AND SAE.
     Route: 048
     Dates: start: 20210908
  3. MINOCYCLINE [Suspect]
     Active Substance: MINOCYCLINE HYDROCHLORIDE
     Indication: Malignant melanoma
     Dosage: ON 21/SEP/2021, SHE RECEIVED MOST RECENT DOSE OF MINOCYCLINE PRIOR TO ONSET OF SAE.
     Route: 048
     Dates: start: 20210920
  4. MINOCYCLINE [Suspect]
     Active Substance: MINOCYCLINE HYDROCHLORIDE
     Indication: Dermatitis acneiform
  5. ADVIL [Concomitant]
     Active Substance: IBUPROFEN
     Indication: Arthralgia
     Route: 048
     Dates: start: 20210909
  6. ACETAMINOPHEN [Concomitant]
     Active Substance: ACETAMINOPHEN
     Indication: Pyrexia
     Route: 048
     Dates: start: 20210917
  7. TUMS [Concomitant]
     Active Substance: CALCIUM CARBONATE
     Indication: Gastrooesophageal reflux disease
     Route: 048
     Dates: start: 20210812
  8. SYNTHROID [Concomitant]
     Active Substance: LEVOTHYROXINE SODIUM
     Route: 048
  9. PREDNISONE [Concomitant]
     Active Substance: PREDNISONE
     Indication: Contrast media allergy
     Route: 048
  10. PREDNISONE [Concomitant]
     Active Substance: PREDNISONE
     Route: 048
     Dates: start: 20210925, end: 20210928
  11. PREDNISONE [Concomitant]
     Active Substance: PREDNISONE
     Route: 048
     Dates: start: 20210929
  12. PANTOPRAZOLE SODIUM [Concomitant]
     Active Substance: PANTOPRAZOLE SODIUM
     Indication: Gastrooesophageal reflux disease
     Route: 048
  13. BILASTINE [Concomitant]
     Active Substance: BILASTINE
     Indication: Contrast media allergy
     Route: 048
  14. ADVAIR HFA [Concomitant]
     Active Substance: FLUTICASONE PROPIONATE\SALMETEROL XINAFOATE
     Indication: Cough
     Dosage: 0.125 PUFF
     Route: 055
     Dates: start: 20210915
  15. LORATADINE [Concomitant]
     Active Substance: LORATADINE
     Indication: Dermatitis acneiform
     Route: 048
     Dates: start: 20210919
  16. RUPATADINE [Concomitant]
     Active Substance: RUPATADINE
     Indication: Dermatitis acneiform
     Route: 048
     Dates: start: 20210920, end: 20210921
  17. DAPSONE [Concomitant]
     Active Substance: DAPSONE
     Indication: Dermatitis acneiform
     Route: 061
     Dates: start: 20210920, end: 20210921
  18. BETAMETHASONE [Concomitant]
     Active Substance: BETAMETHASONE
     Indication: Dermatitis acneiform
     Route: 061
     Dates: start: 20210920

REACTIONS (3)
  - Rash maculo-papular [Recovered/Resolved]
  - Cough [Not Recovered/Not Resolved]
  - Blood creatine phosphokinase increased [Recovered/Resolved]

NARRATIVE: CASE EVENT DATE: 20210920
